FAERS Safety Report 7905051-8 (Version None)
Quarter: 2011Q4

REPORT INFORMATION
  Report Type: 
  Country: None (occurrence: None)
  Receive Date: 20111109
  Receipt Date: 20111104
  Transmission Date: 20120403
  Serious: Yes (Hospitalization)
  Sender: FDA-Public Use
  Company Number: PHHY2011TW82480

PATIENT
  Sex: Female
  Weight: 45.2 kg

DRUGS (1)
  1. ZOLEDRONOC ACID [Suspect]
     Indication: OSTEOPOROSIS
     Dosage: 5 MG/100 ML,  UNK
     Route: 042
     Dates: start: 20110909

REACTIONS (2)
  - LOSS OF CONSCIOUSNESS [None]
  - PYREXIA [None]
